FAERS Safety Report 16914847 (Version 1)
Quarter: 2019Q4

REPORT INFORMATION
  Report Type: Spontaneous
  Country: FR (occurrence: FR)
  Receive Date: 20191014
  Receipt Date: 20191014
  Transmission Date: 20200122
  Serious: Yes (Hospitalization, Other)
  Sender: FDA-Public Use
  Company Number: FR-SA-2019SA276932

PATIENT
  Age: 31 Year
  Sex: Male
  Weight: 60 kg

DRUGS (8)
  1. RIFATER [Suspect]
     Active Substance: ISONIAZID\PYRAZINAMIDE\RIFAMPIN
     Indication: MENINGITIS
     Dosage: 12 DF, QD
     Route: 048
     Dates: start: 20190724, end: 20190906
  2. METHYLPREDNISOLONE. [Concomitant]
     Active Substance: METHYLPREDNISOLONE
     Indication: MENINGITIS
     Dosage: 1 MG/KG, QD
     Route: 042
     Dates: start: 20190802
  3. LINEZOLIDE [Concomitant]
     Active Substance: LINEZOLID
     Indication: MENINGITIS
     Dosage: UNK
     Route: 042
     Dates: start: 20190805, end: 20190905
  4. DEXAMBUTOL [Suspect]
     Active Substance: ETHAMBUTOL HYDROCHLORIDE
     Indication: MENINGITIS
     Dosage: 1000 MG, QD
     Route: 048
     Dates: start: 20190724, end: 20190906
  5. DEXAMETHASONE. [Concomitant]
     Active Substance: DEXAMETHASONE
     Indication: MENINGITIS
     Dosage: 0.4 MG/KG, QD
     Route: 042
     Dates: start: 20190726, end: 20190802
  6. AMOXICILLIN. [Concomitant]
     Active Substance: AMOXICILLIN
     Indication: MENINGITIS
     Dosage: 12 G, QOD
     Route: 042
     Dates: start: 20190723, end: 20190905
  7. MEROPENEM ANHYDROUS [Concomitant]
     Active Substance: MEROPENEM ANHYDROUS
     Indication: MENINGITIS
     Dosage: UNK
     Route: 042
     Dates: start: 20190805, end: 20190905
  8. ENDOXAN [Suspect]
     Active Substance: CYCLOPHOSPHAMIDE
     Indication: CENTRAL NERVOUS SYSTEM LUPUS
     Dosage: 1200 MG, QD
     Route: 042
     Dates: start: 20190829, end: 20190829

REACTIONS (1)
  - Cardiogenic shock [Recovered/Resolved with Sequelae]

NARRATIVE: CASE EVENT DATE: 20190905
